FAERS Safety Report 23127722 (Version 9)
Quarter: 2024Q2

REPORT INFORMATION
  Report Type: Report from Study
  Country: ES (occurrence: ES)
  Receive Date: 20231031
  Receipt Date: 20240525
  Transmission Date: 20240715
  Serious: Yes (Death, Other)
  Sender: FDA-Public Use
  Company Number: ES-ABBVIE-5470557

PATIENT
  Age: 65 Year
  Sex: Female

DRUGS (12)
  1. CARBIDOPA\LEVODOPA [Suspect]
     Active Substance: CARBIDOPA\LEVODOPA
     Indication: Parkinson^s disease
     Dosage: 1100MG OF LEVODOPA
     Route: 050
     Dates: start: 20210428
  2. CARBIDOPA\LEVODOPA [Suspect]
     Active Substance: CARBIDOPA\LEVODOPA
     Dosage: INCREASED THE CONTINUOUS DOSE BY 0.2
     Route: 050
     Dates: start: 202311, end: 202311
  3. CARBIDOPA\LEVODOPA [Suspect]
     Active Substance: CARBIDOPA\LEVODOPA
     Dosage: DECREASED THE DUODOPA BY 200 MG
     Route: 050
     Dates: end: 202311
  4. CARBIDOPA\LEVODOPA [Suspect]
     Active Substance: CARBIDOPA\LEVODOPA
     Dosage: INCREASED IT UP TO 3.1 ML/H
     Route: 050
     Dates: start: 202311, end: 2024
  5. CARBIDOPA\LEVODOPA [Suspect]
     Active Substance: CARBIDOPA\LEVODOPA
     Dosage: INCREASE OF 0.2 ML/H
     Route: 050
     Dates: start: 2024, end: 2024
  6. CARBIDOPA\LEVODOPA [Suspect]
     Active Substance: CARBIDOPA\LEVODOPA
     Dosage: CONTINUOUS DOSE TO 3.3 ML/H.
     Route: 050
  7. LEVODOPA [Concomitant]
     Active Substance: LEVODOPA
     Indication: Multiple system atrophy
     Route: 048
  8. LEVODOPA [Concomitant]
     Active Substance: LEVODOPA
     Indication: Multiple system atrophy
     Dosage: INCREASED MEDICATION
     Route: 048
     Dates: start: 2023
  9. LEVODOPA [Concomitant]
     Active Substance: LEVODOPA
     Indication: Multiple system atrophy
     Dosage: INCREASED 200 MG
     Route: 048
     Dates: start: 2023, end: 2023
  10. LEVODOPA [Concomitant]
     Active Substance: LEVODOPA
     Indication: Multiple system atrophy
     Dosage: INCREASED 200 MG
     Route: 048
     Dates: end: 2023
  11. GRANISETRON [Concomitant]
     Active Substance: GRANISETRON
     Indication: Vomiting
  12. CARBIDOPA\LEVODOPA [Concomitant]
     Active Substance: CARBIDOPA\LEVODOPA
     Indication: Product used for unknown indication

REACTIONS (17)
  - Death [Fatal]
  - Laboratory test abnormal [Unknown]
  - Restlessness [Unknown]
  - Multiple system atrophy [Not Recovered/Not Resolved]
  - Suffocation feeling [Unknown]
  - Constipation [Unknown]
  - Motor dysfunction [Unknown]
  - Vomiting [Recovering/Resolving]
  - Therapeutic product effect incomplete [Unknown]
  - Constipation [Unknown]
  - Nausea [Unknown]
  - General physical health deterioration [Not Recovered/Not Resolved]
  - Hunger [Unknown]
  - Decreased appetite [Unknown]
  - Abdominal rigidity [Unknown]
  - Hypophagia [Unknown]
  - Nausea [Recovered/Resolved]

NARRATIVE: CASE EVENT DATE: 20240501
